FAERS Safety Report 7099970-5 (Version None)
Quarter: 2010Q4

REPORT INFORMATION
  Report Type: 
  Country: None (occurrence: None)
  Receive Date: 20101112
  Receipt Date: 20101108
  Transmission Date: 20110411
  Serious: Yes (Life-Threatening)
  Sender: FDA-Public Use
  Company Number: SE-BAYER-201045542GPV

PATIENT
  Age: 68 Year
  Sex: Male

DRUGS (10)
  1. CIPROXIN [Suspect]
     Indication: PRODUCT USED FOR UNKNOWN INDICATION
     Dosage: UNIT DOSE: 500 MG
     Route: 048
     Dates: start: 20100622, end: 20100629
  2. PREDNISOLON RECIP [Concomitant]
  3. DIOVAN [Concomitant]
  4. SIMVASTATIN [Concomitant]
  5. FINASTERID [Concomitant]
  6. OMEPRAZOL PARANOVA [Concomitant]
  7. ACETAMINOPHEN [Concomitant]
  8. DIKLOFENAK MYLAN [Concomitant]
  9. FLUTICASONE PROPIONATE/SALMETEROL [Concomitant]
  10. ACETYLSALICYLIC ACID SRT [Concomitant]

REACTIONS (4)
  - BLOOD CREATININE INCREASED [None]
  - DECREASED APPETITE [None]
  - FATIGUE [None]
  - TUBULOINTERSTITIAL NEPHRITIS [None]
